FAERS Safety Report 5471300-1 (Version None)
Quarter: 2007Q3

REPORT INFORMATION
  Report Type: 
  Country: None (occurrence: None)
  Receive Date: 20070928
  Receipt Date: 20070921
  Transmission Date: 20080115
  Serious: Yes (Other)
  Sender: FDA-Public Use
  Company Number: FR-SANOFI-SYNTHELABO-A01200710731

PATIENT
  Age: 77 Year
  Sex: Male

DRUGS (1)
  1. PLAVIX [Suspect]
     Indication: ARTERIAL DISORDER
     Route: 048

REACTIONS (1)
  - PHLEBITIS [None]
